FAERS Safety Report 8266354-3 (Version None)
Quarter: 2012Q2

REPORT INFORMATION
  Report Type: 
  Country: None (occurrence: None)
  Receive Date: 20120406
  Receipt Date: 20120324
  Transmission Date: 20120825
  Serious: Yes (Other)
  Sender: FDA-Public Use
  Company Number: JP-FRI-1000029489

PATIENT
  Sex: Male
  Weight: 82 kg

DRUGS (3)
  1. LEXAPRO [Suspect]
     Indication: DEPRESSION
     Dosage: 10 MG
     Route: 048
     Dates: start: 20120126
  2. ALPRAZOLAM [Concomitant]
     Route: 048
  3. MILNACIPRAN HYDROCHLORIDE [Concomitant]
     Dates: end: 20120106

REACTIONS (4)
  - DECREASED APPETITE [None]
  - NAUSEA [None]
  - DIARRHOEA [None]
  - HYPERKALAEMIA [None]
